FAERS Safety Report 9426069 (Version 1)
Quarter: 2013Q3

REPORT INFORMATION
  Report Type: Spontaneous
  Country: US (occurrence: US)
  Receive Date: 20130730
  Receipt Date: 20130730
  Transmission Date: 20140515
  Serious: Yes (Death)
  Sender: FDA-Public Use
  Company Number: US-AMGEN-USASP2013052862

PATIENT
  Age: 36 Year
  Sex: Male

DRUGS (3)
  1. NEUPOGEN [Suspect]
     Indication: NEUTROPENIA
     Dosage: UNK
     Route: 065
  2. CHEMOTHERAPEUTICS [Concomitant]
     Indication: COLORECTAL CANCER METASTATIC
     Dosage: UNK
  3. CHEMOTHERAPEUTICS [Concomitant]
     Indication: METASTASES TO LIVER

REACTIONS (2)
  - Colon cancer metastatic [Fatal]
  - Metastases to liver [Fatal]
